FAERS Safety Report 22220433 (Version 1)
Quarter: 2023Q2

REPORT INFORMATION
  Report Type: Spontaneous
  Country: JP (occurrence: JP)
  Receive Date: 20230417
  Receipt Date: 20230417
  Transmission Date: 20230721
  Serious: Yes (Hospitalization)
  Sender: FDA-Public Use
  Company Number: JP-Techdow-2023Techdow000032

PATIENT
  Age: 79 Year
  Sex: Male

DRUGS (5)
  1. HEPARIN SODIUM [Suspect]
     Active Substance: HEPARIN SODIUM
     Indication: Anticoagulant therapy
  2. NINTEDANIB [Suspect]
     Active Substance: NINTEDANIB
     Indication: Pulmonary fibrosis
     Dosage: 200MG,QD (FOR 2 WEEKS)
  3. REMDESIVIR [Concomitant]
     Active Substance: REMDESIVIR
     Indication: COVID-19 pneumonia
     Dosage: 200 MG ON THE FIRST DAY, FOLLOWED BY 100 MG EVERY 24 HOURS FOR FOUR DAYS
  4. METHYLPREDNISOLONE [Concomitant]
     Active Substance: METHYLPREDNISOLONE
     Indication: Steroid therapy
     Dosage: 1000 MG/DAY FOR 3 DAYS
  5. PREDNISOLONE [Concomitant]
     Active Substance: PREDNISOLONE
     Indication: Steroid therapy
     Dosage: 50MG,QD

REACTIONS (3)
  - Haematoma muscle [Recovering/Resolving]
  - Retroperitoneal haematoma [Recovering/Resolving]
  - Femoral nerve palsy [Recovering/Resolving]
